FAERS Safety Report 21491647 (Version 1)
Quarter: 2022Q4

REPORT INFORMATION
  Report Type: Spontaneous
  Country: US (occurrence: US)
  Receive Date: 20221021
  Receipt Date: 20221021
  Transmission Date: 20230112
  Serious: No
  Sender: FDA-Public Use
  Company Number: US-CELLTRION INC.-2022US011390

PATIENT

DRUGS (1)
  1. INFLECTRA [Suspect]
     Active Substance: INFLIXIMAB-DYYB
     Indication: Product used for unknown indication
     Dosage: 390 MG EVERY 5 WEEKS
     Route: 065
     Dates: start: 202104

REACTIONS (3)
  - Illness [Unknown]
  - Incorrect product administration duration [Unknown]
  - Therapy change [Unknown]

NARRATIVE: CASE EVENT DATE: 20210401
